FAERS Safety Report 9200894 (Version 1)
Quarter: 2013Q1

REPORT INFORMATION
  Report Type: Spontaneous
  Country: US (occurrence: None)
  Receive Date: 20130328
  Receipt Date: 20130328
  Transmission Date: 20140127
  Serious: Yes (Hospitalization)
  Sender: FDA-Public Use
  Company Number: None

PATIENT
  Age: 61 Year
  Sex: Female
  Weight: 54.4 kg

DRUGS (15)
  1. CABOZANTINIB [Suspect]
     Indication: METASTATIC CARCINOID TUMOUR
     Route: 048
     Dates: start: 20121212, end: 20130219
  2. ALDACTONE [Concomitant]
  3. CROON 12 [Concomitant]
  4. DEODORIZED TINCTURE OF OPIUM [Concomitant]
  5. DICLOFENAC [Concomitant]
  6. PROPIONATE NASAL SPRAY [Concomitant]
  7. FUROSEMIUDE [Concomitant]
  8. LANTUS SOLOSTAR PEN [Concomitant]
  9. MULTIVITAMIN ELIXIR [Concomitant]
  10. PREDNISONE [Concomitant]
  11. SIMVAATSTIN [Concomitant]
  12. VITAMIN D3 [Concomitant]
  13. FORRLEOIT [Concomitant]
  14. OCTROOTIDE LAR [Concomitant]
  15. ZOMETA [Concomitant]

REACTIONS (2)
  - Neuroendocrine tumour [None]
  - Brain neoplasm [None]
